FAERS Safety Report 7952549-2 (Version None)
Quarter: 2011Q4

REPORT INFORMATION
  Report Type: 
  Country: None (occurrence: None)
  Receive Date: 20111201
  Receipt Date: 20111118
  Transmission Date: 20120403
  Serious: Yes (Hospitalization)
  Sender: FDA-Public Use
  Company Number: PHHO2011CZ019474

PATIENT
  Sex: Male

DRUGS (4)
  1. BLINDED NO TREATMENT RECEIVED [Suspect]
     Dosage: CODE NOT BROKEN
  2. BLINDED ALISKIREN [Suspect]
     Dosage: CODE NOT BROKEN
  3. ENALAPRIL MALEATE [Suspect]
     Dosage: CODE NOT BROKEN
  4. WARFARIN SODIUM [Suspect]

REACTIONS (1)
  - ANAEMIA [None]
